FAERS Safety Report 4686591-4 (Version None)
Quarter: 2005Q2

REPORT INFORMATION
  Report Type: 
  Country: None (occurrence: None)
  Receive Date: 20050607
  Receipt Date: 20050523
  Transmission Date: 20051028
  Serious: Yes (Hospitalization, Disabling, Other)
  Sender: FDA-Public Use
  Company Number: 2005078401

PATIENT
  Age: 64 Year
  Sex: Female
  Weight: 88.4514 kg

DRUGS (3)
  1. CELEBREX [Suspect]
     Indication: BACK INJURY
     Dosage: ORAL
     Route: 048
     Dates: start: 20030901, end: 20041201
  2. ANTIHYPERTENSIVES (ANTIHYPERTENSIVES) [Concomitant]
  3. ALL OTHER THERAPEUTIC PRODUCTS (ALL OTHER THERAPEUTIC PRODUCTS) [Concomitant]

REACTIONS (10)
  - BLOOD CHOLESTEROL INCREASED [None]
  - BLOOD PRESSURE INCREASED [None]
  - CARDIAC FAILURE CONGESTIVE [None]
  - CARDIAC STRESS TEST ABNORMAL [None]
  - CHEST DISCOMFORT [None]
  - CHEST PAIN [None]
  - DIFFICULTY IN WALKING [None]
  - DYSPNOEA [None]
  - ELECTROCARDIOGRAM ABNORMAL [None]
  - MYOCARDIAL INFARCTION [None]
